FAERS Safety Report 20548729 (Version 1)
Quarter: 2022Q1

REPORT INFORMATION
  Report Type: Spontaneous
  Country: US (occurrence: US)
  Receive Date: 20220303
  Receipt Date: 20220303
  Transmission Date: 20220423
  Serious: No
  Sender: FDA-Public Use
  Company Number: US-ABBVIE-22K-163-4266550-00

PATIENT
  Age: 73 Year
  Sex: Male

DRUGS (1)
  1. TESTOSTERONE [Suspect]
     Active Substance: TESTOSTERONE
     Indication: Hypogonadism
     Dosage: DOSE IS 2 PUMPS TO EACH THIGH ONCE PER DAY
     Route: 061
     Dates: start: 20211224, end: 20211225

REACTIONS (8)
  - Application site pain [Not Recovered/Not Resolved]
  - Erythema [Not Recovered/Not Resolved]
  - Burning sensation [Not Recovered/Not Resolved]
  - Testicular pain [Unknown]
  - Scrotal pain [Unknown]
  - Varicose vein [Unknown]
  - Therapeutic response unexpected [Unknown]
  - Product substitution issue [Unknown]

NARRATIVE: CASE EVENT DATE: 20211201
